FAERS Safety Report 4915741-7 (Version None)
Quarter: 2006Q1

REPORT INFORMATION
  Report Type: 
  Country: None (occurrence: None)
  Receive Date: 20060217
  Receipt Date: 20060207
  Transmission Date: 20060701
  Serious: Yes (Death)
  Sender: FDA-Public Use
  Company Number: US-AMGEN-US164801

PATIENT
  Sex: Female

DRUGS (14)
  1. EPOGEN [Suspect]
     Indication: DIALYSIS
     Dates: start: 20031015
  2. HECTORAL [Concomitant]
  3. VENOFER [Concomitant]
  4. SENSIPAR [Concomitant]
     Indication: HYPERPARATHYROIDISM SECONDARY
  5. RENAGEL [Concomitant]
  6. NORVASC [Concomitant]
  7. HYDRALAZINE HYDROCHLORIDE [Concomitant]
  8. NEURONTIN [Concomitant]
  9. TUMS [Concomitant]
  10. COZAAR [Concomitant]
  11. LIPITOR [Concomitant]
  12. ZANTAC [Concomitant]
  13. LABETALOL HCL [Concomitant]
  14. NEPHRO-VITE [Concomitant]

REACTIONS (4)
  - HAEMOGLOBIN DECREASED [None]
  - HAEMORRHAGE INTRACRANIAL [None]
  - SERUM FERRITIN INCREASED [None]
  - THERAPEUTIC RESPONSE DECREASED [None]
